FAERS Safety Report 23694843 (Version 2)
Quarter: 2024Q2

REPORT INFORMATION
  Report Type: Spontaneous
  Country: US (occurrence: US)
  Receive Date: 20240402
  Receipt Date: 20240501
  Transmission Date: 20240716
  Serious: Yes (Disabling, Other)
  Sender: FDA-Public Use
  Company Number: US-HORIZON THERAPEUTICS-HZN-2024-003639

PATIENT

DRUGS (13)
  1. TEPEZZA [Suspect]
     Active Substance: TEPROTUMUMAB-TRBW
     Indication: Endocrine ophthalmopathy
     Dosage: 885 MG, FIRST INFUSION
     Route: 042
     Dates: start: 20220325
  2. TEPEZZA [Suspect]
     Active Substance: TEPROTUMUMAB-TRBW
     Indication: Graves^ disease
     Dosage: 1770 MG, SECOND INFUSION
     Route: 042
     Dates: start: 20220415
  3. TEPEZZA [Suspect]
     Active Substance: TEPROTUMUMAB-TRBW
     Dosage: 1770 MG, THIRD INFUSION
     Route: 042
     Dates: start: 20220506
  4. TEPEZZA [Suspect]
     Active Substance: TEPROTUMUMAB-TRBW
     Dosage: 1500 MG, FOURTH INFUSION
     Route: 042
     Dates: start: 20220527
  5. TEPEZZA [Suspect]
     Active Substance: TEPROTUMUMAB-TRBW
     Dosage: 1664 MG, FIFTH INFUSION
     Route: 042
     Dates: start: 20220617
  6. TEPEZZA [Suspect]
     Active Substance: TEPROTUMUMAB-TRBW
     Dosage: 1624 MG, SIXTH INFUSION
     Route: 042
     Dates: start: 20220708
  7. TEPEZZA [Suspect]
     Active Substance: TEPROTUMUMAB-TRBW
     Dosage: 1500 MG, SEVENTH INFUSION
     Route: 042
     Dates: start: 20220729, end: 20220729
  8. TEPEZZA [Suspect]
     Active Substance: TEPROTUMUMAB-TRBW
     Dosage: 1500 MG, EIGHTH INFUSION
     Route: 042
     Dates: start: 20220819
  9. LISINOPRIL [Concomitant]
     Active Substance: LISINOPRIL
     Dosage: 10 MG, QD
     Route: 048
  10. SYNJARDY [Concomitant]
     Active Substance: EMPAGLIFLOZIN\METFORMIN HYDROCHLORIDE
     Dosage: UNK UNK, BID
     Route: 048
  11. XARELTO [Concomitant]
     Active Substance: RIVAROXABAN
     Dosage: 20 MG, QD
     Route: 048
  12. METOPROLOL SUCCINATE [Concomitant]
     Active Substance: METOPROLOL SUCCINATE
     Dosage: 100 MG, QD
     Route: 048
  13. LEVOTHYROXINE [Concomitant]
     Active Substance: LEVOTHYROXINE\LEVOTHYROXINE SODIUM
     Dosage: UNK UNK, QD
     Route: 048

REACTIONS (23)
  - Deafness permanent [Unknown]
  - Disability [Unknown]
  - Mastoiditis [Unknown]
  - Physical disability [Unknown]
  - Tinnitus [Unknown]
  - Emotional distress [Unknown]
  - Economic problem [Unknown]
  - Impaired quality of life [Unknown]
  - Concomitant disease aggravated [Unknown]
  - Deformity [Unknown]
  - Anxiety [Unknown]
  - Discomfort [Unknown]
  - Pain [Unknown]
  - Injury [Unknown]
  - Product quality issue [Unknown]
  - Sinusitis [Unknown]
  - Ear discomfort [Unknown]
  - Balance disorder [Unknown]
  - Abdominal distension [Unknown]
  - Constipation [Unknown]
  - Soft tissue swelling [Unknown]
  - Weight decreased [Unknown]
  - Muscle spasms [Unknown]

NARRATIVE: CASE EVENT DATE: 20220101
